FAERS Safety Report 7101980-6 (Version None)
Quarter: 2010Q4

REPORT INFORMATION
  Report Type: 
  Country: None (occurrence: None)
  Receive Date: 20101115
  Receipt Date: 20101102
  Transmission Date: 20110411
  Serious: Yes (Other)
  Sender: FDA-Public Use
  Company Number: US-ELI_LILLY_AND_COMPANY-US200708001606

PATIENT
  Sex: Female
  Weight: 71.655 kg

DRUGS (9)
  1. BYETTA [Suspect]
     Indication: TYPE 2 DIABETES MELLITUS
     Dosage: 5 UG, 2/D
     Route: 058
     Dates: start: 20051128, end: 20060119
  2. BYETTA [Suspect]
     Dosage: 10 UG, 2/D
     Route: 058
     Dates: start: 20060119
  3. BYETTA [Suspect]
     Dosage: 10 UG, 2/D
     Route: 058
     Dates: end: 20101006
  4. GLUCOPHAGE [Concomitant]
     Indication: TYPE 2 DIABETES MELLITUS
     Dosage: 1000 MG, 2/D
     Route: 048
  5. LEVEMIR [Concomitant]
     Indication: TYPE 2 DIABETES MELLITUS
     Dosage: 12 U, DAILY (1/D)
     Route: 058
     Dates: end: 20100812
  6. LEVEMIR [Concomitant]
     Dosage: 10 U, EACH EVENING
     Dates: start: 20100812
  7. LEVEMIR [Concomitant]
     Dosage: 14 U, EACH MORNING
     Dates: start: 20100812
  8. VITAMIN D [Concomitant]
     Indication: VITAMIN SUPPLEMENTATION
     Dosage: 1000 IU, 2/D
  9. ASPIRIN [Concomitant]
     Dosage: UNK, DAILY (1/D)

REACTIONS (9)
  - BLOOD GLUCOSE DECREASED [None]
  - BLOOD GLUCOSE INCREASED [None]
  - DRUG INEFFECTIVE [None]
  - DRY MOUTH [None]
  - FATIGUE [None]
  - NAUSEA [None]
  - OFF LABEL USE [None]
  - PROLYMPHOCYTIC LEUKAEMIA [None]
  - WEIGHT DECREASED [None]
